FAERS Safety Report 9271935 (Version 2)
Quarter: 2013Q2

REPORT INFORMATION
  Report Type: Spontaneous
  Country: JP (occurrence: JP)
  Receive Date: 20130506
  Receipt Date: 20130603
  Transmission Date: 20140414
  Serious: Yes (Hospitalization)
  Sender: FDA-Public Use
  Company Number: JP-UCBSA-084991

PATIENT
  Age: 66 Year
  Sex: Female
  Weight: 43 kg

DRUGS (11)
  1. CIMZIA [Suspect]
     Indication: RHEUMATOID ARTHRITIS
     Route: 058
     Dates: start: 20130312
  2. METHOTREXATE [Suspect]
     Indication: RHEUMATOID ARTHRITIS
     Dosage: DAILY DOSE: 6 MG
     Route: 048
     Dates: end: 20130421
  3. HYALEIN [Concomitant]
     Indication: EYE DISORDER
     Dosage: DAILY DOSE: 5 ML
     Route: 047
  4. FOLIAMIN [Concomitant]
     Indication: PROPHYLAXIS
     Dosage: DAILY DOSE: 5 MG
     Route: 048
  5. PURSENNID [Concomitant]
     Indication: CONSTIPATION
     Dosage: DAILY DOSE: 24 MG
     Route: 048
  6. VOLTAREN [Concomitant]
     Indication: PAIN
     Route: 054
  7. ACTONEL [Concomitant]
     Indication: OSTEOPOROSIS
     Dosage: DAILY DOSE: 75 MG
     Route: 048
     Dates: start: 20130329
  8. LOXONIN [Concomitant]
     Indication: PAIN
     Dosage: DAILY DOSE: 50 MG
     Route: 061
     Dates: start: 20120914
  9. MEDROL [Concomitant]
     Indication: RHEUMATOID ARTHRITIS
     Dosage: DAILY DOSE: 2 MG
     Route: 048
     Dates: start: 20120608
  10. MYSLEE [Concomitant]
     Indication: INSOMNIA
     Dosage: DAILY DOSE: 5 MG
     Dates: start: 20120801
  11. ONEALFA [Concomitant]
     Indication: OSTEOPOROSIS
     Dosage: DAILY DOSE: 0.5 MCG
     Route: 048
     Dates: start: 20121012

REACTIONS (1)
  - Pyelonephritis [Recovering/Resolving]
